FAERS Safety Report 4474416-1 (Version None)
Quarter: 2004Q4

REPORT INFORMATION
  Report Type: 
  Country: None (occurrence: None)
  Receive Date: 20041014
  Receipt Date: 20041004
  Transmission Date: 20050328
  Serious: Yes (Life-Threatening, Other)
  Sender: FDA-Public Use
  Company Number: JP-ABBOTT-04P-087-0276394-00

PATIENT
  Age: 81 Year
  Sex: Female

DRUGS (15)
  1. KLARICID [Suspect]
     Indication: DUODENAL ULCER
     Route: 048
     Dates: start: 20040813, end: 20040815
  2. KLARICID [Suspect]
     Indication: HELICOBACTER INFECTION
  3. OMEPRAZOLE [Suspect]
     Indication: DUODENAL ULCER
     Route: 048
     Dates: start: 20040813, end: 20040815
  4. OMEPRAZOLE [Suspect]
     Indication: HELICOBACTER INFECTION
  5. AMOXICILLIN [Suspect]
     Indication: DUODENAL ULCER
     Route: 048
     Dates: start: 20040813, end: 20040815
  6. AMOXICILLIN [Suspect]
     Indication: HELICOBACTER INFECTION
  7. PREDNISOLONE [Concomitant]
     Indication: ASTHMA
     Route: 048
  8. VALSARTAN [Concomitant]
     Indication: HYPERTENSION
     Route: 048
  9. DISOPYRAMIDE PHOSPHATE [Concomitant]
     Indication: VENTRICULAR ARRHYTHMIA
     Route: 048
  10. PRANLUKAST [Concomitant]
     Indication: ASTHMA
     Route: 048
  11. POTASSIUM CHLORIDE [Concomitant]
     Indication: HYPOKALAEMIA
     Route: 048
  12. CLENBUTEROL HYDROCHLORIDE [Concomitant]
     Indication: ASTHMA
     Route: 048
  13. AMLODIPINE BESYLATE [Concomitant]
     Indication: HYPERTENSION
     Route: 048
  14. THEOPHYLLINE [Concomitant]
     Indication: ASTHMA
     Route: 048
  15. FEXOFENADINE HYDROCHLORIDE [Concomitant]
     Indication: ASTHMA
     Route: 048

REACTIONS (8)
  - BLOOD GLUCOSE DECREASED [None]
  - DEPRESSED LEVEL OF CONSCIOUSNESS [None]
  - FEELING COLD [None]
  - GAIT DISTURBANCE [None]
  - GLOSSOPTOSIS [None]
  - HYPOGLYCAEMIA UNAWARENESS [None]
  - MARKEDLY REDUCED DIETARY INTAKE [None]
  - NAUSEA [None]
